FAERS Safety Report 17813502 (Version 1)
Quarter: 2020Q2

REPORT INFORMATION
  Report Type: Report from Study
  Country: ID (occurrence: ID)
  Receive Date: 20200521
  Receipt Date: 20200521
  Transmission Date: 20200714
  Serious: Yes (Death, Hospitalization, Other)
  Sender: FDA-Public Use
  Company Number: ID-BAYER-2020-050157

PATIENT
  Age: 76 Year
  Sex: Male

DRUGS (1)
  1. NEXAVAR [Suspect]
     Active Substance: SORAFENIB
     Indication: HEPATOCELLULAR CARCINOMA
     Dosage: 400 MG DAILY
     Route: 048
     Dates: start: 20200304, end: 20200430

REACTIONS (14)
  - Hepatocellular carcinoma [Fatal]
  - Gait disturbance [None]
  - Mouth ulceration [Recovered/Resolved]
  - Diarrhoea [Recovered/Resolved]
  - Mouth ulceration [None]
  - Chromaturia [Recovered/Resolved]
  - Eating disorder [None]
  - Limb discomfort [None]
  - Pruritus [None]
  - Hyponatraemia [None]
  - Eating disorder [Recovered/Resolved]
  - Hypotension [None]
  - Skin wound [None]
  - Off label use [Not Recovered/Not Resolved]

NARRATIVE: CASE EVENT DATE: 20200304
